FAERS Safety Report 24996500 (Version 1)
Quarter: 2025Q1

REPORT INFORMATION
  Report Type: Spontaneous
  Country: US (occurrence: US)
  Receive Date: 20250221
  Receipt Date: 20250221
  Transmission Date: 20250408
  Serious: Yes (Hospitalization, Other)
  Sender: FRESENIUS KABI
  Company Number: US-FreseniusKabi-FK202502923

PATIENT
  Age: 54 Year
  Sex: Male
  Weight: 75.8 kg

DRUGS (4)
  1. LEUCOVORIN CALCIUM [Suspect]
     Active Substance: LEUCOVORIN CALCIUM
     Indication: Hepatobiliary cancer
     Dates: start: 20250102, end: 20250116
  2. BINIMETINIB [Suspect]
     Active Substance: BINIMETINIB
     Indication: Hepatobiliary cancer
     Dates: start: 20250102, end: 20250116
  3. FLUOROURACIL [Suspect]
     Active Substance: FLUOROURACIL
     Indication: Hepatobiliary cancer
     Dates: start: 20241219, end: 20250116
  4. ELOXATIN [Suspect]
     Active Substance: OXALIPLATIN
     Indication: Hepatobiliary cancer
     Dates: start: 20250102, end: 20250116

REACTIONS (1)
  - Febrile neutropenia [Recovering/Resolving]

NARRATIVE: CASE EVENT DATE: 20250117
